FAERS Safety Report 5362360-7 (Version None)
Quarter: 2007Q2

REPORT INFORMATION
  Report Type: 
  Country: None (occurrence: None)
  Receive Date: 20070619
  Receipt Date: 20070614
  Transmission Date: 20071010
  Serious: Yes (Hospitalization, Other)
  Sender: FDA-Public Use
  Company Number: PHBS2006BR07667

PATIENT
  Age: 72 Year
  Sex: Male
  Weight: 86 kg

DRUGS (6)
  1. TRILEPTAL [Suspect]
     Indication: TRIGEMINAL NERVE DISORDER
     Dosage: 300 MG/D
     Route: 048
     Dates: start: 20051214, end: 20060326
  2. TRILEPTAL [Suspect]
     Dosage: 300 MG, Q12H
     Route: 048
  3. TRILEPTAL [Suspect]
     Dosage: 600 MG, Q12H
     Route: 048
     Dates: end: 20060326
  4. MAREVAN [Concomitant]
     Indication: CARDIAC DISORDER
     Dosage: 5 MG, BID
     Route: 048
  5. DIGOXIN [Concomitant]
     Indication: CARDIAC DISORDER
     Dosage: 1 DF, QOD
     Route: 048
  6. SIMVASTATIN [Concomitant]
     Dosage: 1 TABLET/D
     Route: 048

REACTIONS (14)
  - ASTHENIA [None]
  - CEREBRAL THROMBOSIS [None]
  - CONVULSION [None]
  - DIZZINESS [None]
  - FALL [None]
  - HAEMATOMA [None]
  - HEAD INJURY [None]
  - HYPOAESTHESIA [None]
  - MALAISE [None]
  - PARALYSIS [None]
  - SURGERY [None]
  - TRIGEMINAL NERVE ABLATION [None]
  - VISUAL ACUITY REDUCED [None]
  - WEIGHT DECREASED [None]
